FAERS Safety Report 6317649-1 (Version None)
Quarter: 2009Q3

REPORT INFORMATION
  Report Type: 
  Country: None (occurrence: None)
  Receive Date: 20090821
  Receipt Date: 20090817
  Transmission Date: 20100115
  Serious: No
  Sender: FDA-Public Use
  Company Number: US-B.I. PHARMACEUTICALS,INC./RIDGEFIELD-2009-BP-09730BP

PATIENT
  Sex: Female

DRUGS (1)
  1. SPIRIVA [Suspect]
     Indication: EMPHYSEMA
     Dosage: 18 MCG
     Route: 055
     Dates: start: 20090201

REACTIONS (8)
  - CONSTIPATION [None]
  - DRUG INEFFECTIVE [None]
  - DYSURIA [None]
  - HAEMOPTYSIS [None]
  - INCREASED UPPER AIRWAY SECRETION [None]
  - NASAL CONGESTION [None]
  - PRURITUS [None]
  - VISION BLURRED [None]
